FAERS Safety Report 15264629 (Version 1)
Quarter: 2018Q3

REPORT INFORMATION
  Report Type: Spontaneous
  Country: IL (occurrence: IL)
  Receive Date: 20180810
  Receipt Date: 20180810
  Transmission Date: 20181010
  Serious: Yes (Other)
  Sender: FDA-Public Use
  Company Number: IL-BAYER-2018-144876

PATIENT
  Sex: Male

DRUGS (1)
  1. XOFIGO [Suspect]
     Active Substance: RADIUM RA-223 DICHLORIDE
     Dosage: UNK
     Dates: start: 20180725, end: 20180725

REACTIONS (3)
  - Metastases to lung [Not Recovered/Not Resolved]
  - Metastasis [Not Recovered/Not Resolved]
  - Disease progression [None]

NARRATIVE: CASE EVENT DATE: 201807
